FAERS Safety Report 16544147 (Version 1)
Quarter: 2019Q3

REPORT INFORMATION
  Report Type: Spontaneous
  Country: US (occurrence: US)
  Receive Date: 20190709
  Receipt Date: 20190709
  Transmission Date: 20191004
  Serious: No
  Sender: FDA-Public Use
  Company Number: US-TEVA-2019-US-1065928

PATIENT
  Sex: Male

DRUGS (2)
  1. PREDNISONE. [Suspect]
     Active Substance: PREDNISONE
     Route: 065
  2. OTEZLA [Suspect]
     Active Substance: APREMILAST
     Route: 065

REACTIONS (3)
  - Dissociation [Unknown]
  - Middle insomnia [Unknown]
  - Thinking abnormal [Unknown]
